FAERS Safety Report 26006419 (Version 1)
Quarter: 2025Q4

REPORT INFORMATION
  Report Type: Spontaneous
  Country: EU (occurrence: EU)
  Receive Date: 20251106
  Receipt Date: 20251106
  Transmission Date: 20260117
  Serious: Yes (Hospitalization)
  Sender: NOVARTIS
  Company Number: None

PATIENT
  Age: 54 Year
  Sex: Male

DRUGS (1)
  1. GLIVEC [Suspect]
     Active Substance: IMATINIB MESYLATE
     Indication: Hypereosinophilic syndrome
     Dosage: 100 MG
     Route: 048
     Dates: start: 20250319, end: 202504

REACTIONS (3)
  - Embolia cutis medicamentosa [Recovered/Resolved]
  - Intermittent claudication [Recovered/Resolved]
  - Atheroembolism [Recovered/Resolved]

NARRATIVE: CASE EVENT DATE: 20250401
